FAERS Safety Report 7773344-3 (Version None)
Quarter: 2011Q3

REPORT INFORMATION
  Report Type: 
  Country: None (occurrence: None)
  Receive Date: 20110922
  Receipt Date: 20110920
  Transmission Date: 20111222
  Serious: Yes (Hospitalization)
  Sender: FDA-Public Use
  Company Number: CA-ABBOTT-11P-028-0856685-00

PATIENT
  Sex: Male
  Weight: 54.026 kg

DRUGS (3)
  1. HUMIRA [Suspect]
     Route: 058
     Dates: start: 20110901
  2. HUMIRA [Suspect]
     Indication: CROHN'S DISEASE
     Route: 058
     Dates: start: 20110822
  3. UNK MEDICATION [Concomitant]
     Indication: PRODUCT USED FOR UNKNOWN INDICATION

REACTIONS (6)
  - HAEMATOCHEZIA [None]
  - ASTHENIA [None]
  - DIARRHOEA [None]
  - GASTROINTESTINAL PAIN [None]
  - CONSTIPATION [None]
  - CROHN'S DISEASE [None]
